FAERS Safety Report 7364736-5 (Version None)
Quarter: 2011Q1

REPORT INFORMATION
  Report Type: 
  Country: None (occurrence: None)
  Receive Date: 20110321
  Receipt Date: 20110311
  Transmission Date: 20110831
  Serious: Yes (Hospitalization)
  Sender: FDA-Public Use
  Company Number: JP-ASTRAZENECA-2010SE50034

PATIENT
  Age: 27312 Day
  Sex: Female
  Weight: 71 kg

DRUGS (28)
  1. MOHRUS TAPE [Concomitant]
     Indication: ANALGESIC THERAPY
     Dosage: OPTIMAL DOSE
     Route: 062
  2. HEAVY MAGNESIUM OXIDE [Concomitant]
     Indication: GASTRITIS PROPHYLAXIS
     Route: 048
  3. LANDEL 40 [Concomitant]
     Indication: HYPERTENSION
     Route: 048
     Dates: start: 20060302
  4. ZOMETA [Concomitant]
     Indication: METASTASES TO BONE
     Route: 048
     Dates: start: 20060828, end: 20060828
  5. SILECE [Concomitant]
     Indication: AUTONOMIC NERVOUS SYSTEM IMBALANCE
     Route: 048
  6. ZOMETA [Concomitant]
     Dates: start: 20060828, end: 20070507
  7. ATELEC [Concomitant]
     Indication: HYPERTENSION
     Route: 048
     Dates: start: 20090428
  8. AROMASIN [Suspect]
     Indication: BREAST CANCER
     Route: 048
     Dates: start: 20081209, end: 20101013
  9. NIFLAN [Concomitant]
     Indication: CATARACT
     Dosage: FOUR TIMES A DAY
     Route: 047
  10. CEROCRAL [Concomitant]
     Indication: DIZZINESS
     Route: 048
  11. POSTERISAN [Concomitant]
     Indication: HAEMORRHOIDS
     Route: 062
  12. NELBIS [Concomitant]
     Indication: DIABETES MELLITUS
     Route: 048
  13. ZOMETA [Concomitant]
     Dates: start: 20060828, end: 20070507
  14. YODEL-S [Concomitant]
     Indication: CONSTIPATION
     Route: 048
     Dates: start: 20070427
  15. ARIMIDEX [Suspect]
     Indication: BREAST CANCER
     Route: 048
     Dates: start: 20050704, end: 20081207
  16. TENAXIL [Suspect]
     Indication: HYPERTENSION
     Route: 048
     Dates: start: 20051012, end: 20081222
  17. CANDESARTAN CILEXETIL AND HYDROCHLOROTHIAZIDE [Concomitant]
     Indication: HYPERTENSION
     Route: 048
     Dates: start: 20101012
  18. BUFFERIN [Concomitant]
     Indication: CEREBRAL INFARCTION
     Route: 048
     Dates: end: 20061114
  19. ZOMETA [Concomitant]
     Indication: BREAST CANCER
     Route: 048
     Dates: start: 20060828, end: 20060828
  20. RHUBARB [Concomitant]
     Indication: GASTRITIS PROPHYLAXIS
     Route: 048
  21. NORVASC [Concomitant]
     Indication: HYPERTENSION
     Route: 048
     Dates: start: 20050819
  22. SELBEX [Concomitant]
     Indication: GASTRITIS PROPHYLAXIS
     Route: 048
     Dates: start: 20051026
  23. DIOVAN [Concomitant]
     Indication: HYPERTENSION
     Route: 048
     Dates: start: 20051216
  24. SOLANAX [Concomitant]
     Indication: AUTONOMIC NERVOUS SYSTEM IMBALANCE
     Route: 048
  25. LOXONIN [Suspect]
     Indication: METASTASES TO BONE
     Route: 048
  26. HEMOCURON [Concomitant]
     Indication: HAEMORRHOIDS
     Route: 048
  27. RHYTHMY [Concomitant]
     Indication: INSOMNIA
     Route: 048
     Dates: start: 20050713
  28. MAINTATE [Concomitant]
     Indication: HYPERTENSION
     Route: 048
     Dates: start: 20051116

REACTIONS (3)
  - FISTULA [None]
  - NEPHROGENIC ANAEMIA [None]
  - HUMERUS FRACTURE [None]
